FAERS Safety Report 4451893-3 (Version None)
Quarter: 2004Q3

REPORT INFORMATION
  Report Type: 
  Country: None (occurrence: None)
  Receive Date: 20040915
  Receipt Date: 20040915
  Transmission Date: 20050211
  Serious: Yes (Life-Threatening, Hospitalization)
  Sender: FDA-Public Use
  Company Number: None

PATIENT
  Age: 26 Year
  Sex: Female
  Weight: 101.4 kg

DRUGS (2)
  1. RITUXIMAB [Suspect]
  2. IMMUNE GLOBULIN (HUMAN) [Concomitant]

REACTIONS (4)
  - BURNING SENSATION [None]
  - OEDEMA PERIPHERAL [None]
  - RASH [None]
  - SWELLING [None]
